FAERS Safety Report 4472032-9 (Version None)
Quarter: 2004Q4

REPORT INFORMATION
  Report Type: 
  Country: None (occurrence: None)
  Receive Date: 20041007
  Receipt Date: 20040927
  Transmission Date: 20050328
  Serious: Yes (Hospitalization)
  Sender: FDA-Public Use
  Company Number: 2004068004

PATIENT
  Age: 45 Year
  Sex: Female

DRUGS (4)
  1. RELPAX [Suspect]
     Indication: MIGRAINE
     Dosage: ORAL
     Route: 048
  2. CITALOPRAM HYDROBROMIDE (CITALOPRAM HYDROBROMIDE) [Concomitant]
  3. MIRTAZAPINE [Concomitant]
  4. ROFECOXIB [Concomitant]

REACTIONS (2)
  - INTENTIONAL MISUSE [None]
  - OVERDOSE [None]
